FAERS Safety Report 9624847 (Version 1)
Quarter: 2013Q4

REPORT INFORMATION
  Report Type: Report from Study
  Country: JP (occurrence: JP)
  Receive Date: 20131015
  Receipt Date: 20131015
  Transmission Date: 20140711
  Serious: Yes (Other)
  Sender: FDA-Public Use
  Company Number: JP-ROCHE-1289312

PATIENT
  Sex: 0

DRUGS (2)
  1. ALTEPLASE [Suspect]
     Indication: ISCHAEMIC STROKE
     Dosage: 10% GIVEN BOLUS
     Route: 040
  2. ALTEPLASE [Suspect]
     Dosage: NOT EXCEDING 60 MG, 1 HOUR DURATION
     Route: 042

REACTIONS (1)
  - Meningitis [Unknown]
